FAERS Safety Report 4594311-7 (Version None)
Quarter: 2005Q1

REPORT INFORMATION
  Report Type: 
  Country: None (occurrence: None)
  Receive Date: 20050301
  Receipt Date: 20041001
  Transmission Date: 20050727
  Serious: No
  Sender: FDA-Public Use
  Company Number: US-GLAXOSMITHKLINE-A0528119A

PATIENT
  Age: 25 Year
  Sex: Female

DRUGS (2)
  1. VALTREX [Suspect]
     Indication: ILL-DEFINED DISORDER
     Dosage: 500MG PER DAY
     Route: 048
     Dates: start: 20040910
  2. BC POWDER [Concomitant]
     Route: 065

REACTIONS (1)
  - DRY SKIN [None]
